FAERS Safety Report 18522245 (Version 2)
Quarter: 2020Q4

REPORT INFORMATION
  Report Type: Spontaneous
  Country: US (occurrence: US)
  Receive Date: 20201119
  Receipt Date: 20201202
  Transmission Date: 20210114
  Serious: Yes (Other)
  Sender: FDA-Public Use
  Company Number: US-BAYER-2020-246128

PATIENT
  Age: 64 Year
  Sex: Male

DRUGS (1)
  1. AFRIN NO DRIP SEVERE CONGESTION [Suspect]
     Active Substance: OXYMETAZOLINE HYDROCHLORIDE
     Indication: SINUS DISORDER
     Dosage: 2 DF
     Route: 045

REACTIONS (10)
  - Dysgeusia [Unknown]
  - Hyperhidrosis [Unknown]
  - Ageusia [None]
  - Rebound effect [None]
  - Abdominal pain upper [Unknown]
  - Dry skin [Unknown]
  - Pollakiuria [None]
  - Drug dependence [Unknown]
  - Retching [Recovered/Resolved]
  - Hypoaesthesia [Unknown]
